FAERS Safety Report 6846503-1 (Version None)
Quarter: 2010Q3

REPORT INFORMATION
  Report Type: 
  Country: None (occurrence: None)
  Receive Date: 20100715
  Receipt Date: 20070918
  Transmission Date: 20110219
  Serious: No
  Sender: FDA-Public Use
  Company Number: US-PFIZER INC-2007078602

PATIENT
  Sex: Female
  Weight: 90.9 kg

DRUGS (4)
  1. CHANTIX [Suspect]
     Indication: SMOKING CESSATION THERAPY
     Route: 048
     Dates: start: 20070916, end: 20070917
  2. XANAX [Concomitant]
  3. PROZAC [Concomitant]
  4. VICODIN [Concomitant]

REACTIONS (4)
  - FEELING ABNORMAL [None]
  - HEADACHE [None]
  - PALPITATIONS [None]
  - SEDATION [None]
